FAERS Safety Report 9529022 (Version 2)
Quarter: 2014Q3

REPORT INFORMATION
  Report Type: Spontaneous
  Country: US (occurrence: US)
  Receive Date: 20130917
  Receipt Date: 20140812
  Transmission Date: 20150326
  Serious: Yes (Hospitalization, Other)
  Sender: FDA-Public Use
  Company Number: US-009507513-1309USA006851

PATIENT
  Sex: Female
  Weight: 48.98 kg

DRUGS (1)
  1. NUVARING [Suspect]
     Active Substance: ETHINYL ESTRADIOL\ETONOGESTREL
     Indication: CONTRACEPTION
     Dosage: INSERT FOR 3 WEEKS
     Route: 067
     Dates: start: 200706, end: 20130210

REACTIONS (4)
  - Pulmonary embolism [Unknown]
  - Vulvovaginal dryness [Unknown]
  - Vaginal discharge [Unknown]
  - Homocystinaemia [Unknown]

NARRATIVE: CASE EVENT DATE: 20090108
